FAERS Safety Report 5759588-0 (Version None)
Quarter: 2008Q2

REPORT INFORMATION
  Report Type: 
  Country: None (occurrence: None)
  Receive Date: 20080605
  Receipt Date: 20080430
  Transmission Date: 20081010
  Serious: Yes (Hospitalization, Disabling)
  Sender: FDA-Public Use
  Company Number: US-ASTRAZENECA-2008UW11216

PATIENT
  Age: 54 Year
  Sex: Male

DRUGS (3)
  1. SEROQUEL [Suspect]
     Dosage: 800 MG TO 900 MG
     Route: 048
  2. DEPAKOTE [Suspect]
  3. KLONOPIN [Suspect]

REACTIONS (3)
  - CONFUSIONAL STATE [None]
  - PARALYSIS [None]
  - PARKINSONISM [None]
